FAERS Safety Report 4764604-9 (Version None)
Quarter: 2005Q3

REPORT INFORMATION
  Report Type: 
  Country: None (occurrence: None)
  Receive Date: 20050906
  Receipt Date: 20050826
  Transmission Date: 20060218
  Serious: Yes (Other)
  Sender: FDA-Public Use
  Company Number: USA-2005-0021135

PATIENT
  Age: 84 Year
  Sex: Female

DRUGS (6)
  1. PERI-COLACE [Suspect]
     Indication: CONSTIPATION PROPHYLAXIS
     Dosage: SEE TEXT,
  2. MILK OF MAGNESIA TAB [Suspect]
     Indication: CONSTIPATION
  3. ENOXAPARIN SODIUM [Suspect]
  4. DABIGATRAN ETEXILATE () [Suspect]
  5. DARVOCET-N (DEXTROPROPOXYPHENE NAPSILATE) [Concomitant]
  6. LASIX [Concomitant]

REACTIONS (7)
  - ANAL DISCOMFORT [None]
  - GASTRITIS EROSIVE [None]
  - HAEMOGLOBIN DECREASED [None]
  - HIATUS HERNIA [None]
  - OCCULT BLOOD POSITIVE [None]
  - POST PROCEDURAL COMPLICATION [None]
  - REFLUX OESOPHAGITIS [None]
